FAERS Safety Report 11398419 (Version 1)
Quarter: 2015Q3

REPORT INFORMATION
  Report Type: Spontaneous
  Country: US (occurrence: None)
  Receive Date: 20150729
  Receipt Date: 20150729
  Transmission Date: 20151125
  Serious: Yes (Other)
  Sender: FDA-Public Use
  Company Number: GXBR2015US001014

PATIENT
  Age: 59 Year
  Sex: Female
  Weight: 62.6 kg

DRUGS (5)
  1. DEXAMETHASONE. [Concomitant]
     Active Substance: DEXAMETHASONE
  2. LISINOPRIL. [Concomitant]
     Active Substance: LISINOPRIL
  3. ZOFRAN (ONDANSETRON HYDROCHLORIDE) [Concomitant]
  4. HCTZ (HYDROCHLOROTHIAZIDE) [Concomitant]
     Active Substance: HYDROCHLOROTHIAZIDE
  5. DOCETAXEL (NGX) (DOCETAXEL) UNKNOWN [Suspect]
     Active Substance: DOCETAXEL
     Indication: BREAST CANCER
     Route: 042
     Dates: start: 20150303, end: 20150303

REACTIONS (4)
  - Dyspnoea [None]
  - Chest pain [None]
  - Erythema [None]
  - Hyperhidrosis [None]

NARRATIVE: CASE EVENT DATE: 20150303
